FAERS Safety Report 10150216 (Version 1)
Quarter: 2014Q2

REPORT INFORMATION
  Report Type: Spontaneous
  Country: US (occurrence: None)
  Receive Date: 20140501
  Receipt Date: 20140501
  Transmission Date: 20141212
  Serious: Yes (Hospitalization)
  Sender: FDA-Public Use
  Company Number: None

PATIENT
  Age: 83 Year
  Sex: Male

DRUGS (5)
  1. HEPARIN [Suspect]
     Indication: THROMBOSIS PROPHYLAXIS
     Dosage: 5000 UNITS AND 100 UNITS/HR
     Route: 058
     Dates: start: 20130628, end: 20130905
  2. SENNA [Concomitant]
  3. DOCUSATE [Concomitant]
  4. METOPROLOL TARTRATE [Concomitant]
  5. LOSARTAN [Concomitant]

REACTIONS (3)
  - Duodenal ulcer [None]
  - Haemoglobin decreased [None]
  - Gastrointestinal haemorrhage [None]
